FAERS Safety Report 5306477-1 (Version None)
Quarter: 2007Q2

REPORT INFORMATION
  Report Type: 
  Country: None (occurrence: None)
  Receive Date: 20070416
  Receipt Date: 20070329
  Transmission Date: 20071010
  Serious: Yes (Hospitalization)
  Sender: FDA-Public Use
  Company Number: 2007BI001277

PATIENT
  Age: 58 Year
  Sex: Male
  Weight: 87 kg

DRUGS (4)
  1. AVONEX [Suspect]
     Indication: MULTIPLE SCLEROSIS
     Dosage: QW; IM
     Route: 030
     Dates: start: 20050301
  2. ANTIDEPRESSANTS [Concomitant]
  3. CAPTOPRIL [Concomitant]
  4. AZATHIOPRINE [Concomitant]

REACTIONS (9)
  - BRAIN NEOPLASM BENIGN [None]
  - DIABETES MELLITUS [None]
  - HEADACHE [None]
  - MULTIPLE SCLEROSIS RELAPSE [None]
  - OPTIC NERVE NEOPLASM [None]
  - PAIN [None]
  - PRURITUS [None]
  - VISUAL DISTURBANCE [None]
  - WOUND [None]
